FAERS Safety Report 7096311-4 (Version None)
Quarter: 2010Q4

REPORT INFORMATION
  Report Type: 
  Country: None (occurrence: None)
  Receive Date: 20101111
  Receipt Date: 20081020
  Transmission Date: 20110411
  Serious: No
  Sender: FDA-Public Use
  Company Number: US-KINGPHARMUSA00001-K200801227

PATIENT
  Sex: Female

DRUGS (2)
  1. ALTACE [Suspect]
     Indication: PROPHYLAXIS
     Dosage: 5 MG, UNK
  2. ALTACE [Suspect]
     Dosage: 10 MG, UNK

REACTIONS (2)
  - COUGH [None]
  - FATIGUE [None]
